FAERS Safety Report 4538973-9 (Version None)
Quarter: 2004Q4

REPORT INFORMATION
  Report Type: 
  Country: None (occurrence: None)
  Receive Date: 20041222
  Receipt Date: 20041206
  Transmission Date: 20050328
  Serious: Yes (Hospitalization, Other)
  Sender: FDA-Public Use
  Company Number: USA031253682

PATIENT
  Age: 80 Year
  Sex: Female
  Weight: 70 kg

DRUGS (6)
  1. FORTEO [Suspect]
     Indication: OSTEOPOROSIS
     Dosage: 20 UG 1 DAY
     Dates: start: 20031101, end: 20041201
  2. CALCIUM [Concomitant]
  3. GLUCOSAMINE CHONDROITIN [Concomitant]
  4. VICODIN [Concomitant]
  5. DIOVAN [Concomitant]
  6. SYNTHROID [Concomitant]

REACTIONS (13)
  - ARTHRALGIA [None]
  - BUTTOCK PAIN [None]
  - DEVICE INTERACTION [None]
  - DIFFICULTY IN WALKING [None]
  - GROIN PAIN [None]
  - HYPOTENSION [None]
  - MIDDLE INSOMNIA [None]
  - MUSCULOSKELETAL STIFFNESS [None]
  - PAIN [None]
  - PAIN IN EXTREMITY [None]
  - PHARMACEUTICAL PRODUCT COMPLAINT [None]
  - POST PROCEDURAL PAIN [None]
  - URINE OUTPUT DECREASED [None]
